FAERS Safety Report 8388011-5 (Version None)
Quarter: 2012Q2

REPORT INFORMATION
  Report Type: 
  Country: None (occurrence: None)
  Receive Date: 20120525
  Receipt Date: 20120521
  Transmission Date: 20120825
  Serious: Yes (Death, Hospitalization, Other)
  Sender: FDA-Public Use
  Company Number: US-TEVA-339408USA

PATIENT
  Age: 37 Year
  Sex: Female

DRUGS (5)
  1. PHENYTOIN [Concomitant]
     Indication: GRAND MAL CONVULSION
     Route: 042
  2. VALPROIC ACID [Suspect]
     Dosage: FROM DAY 19
     Route: 065
  3. LEVETIRACETAM [Concomitant]
  4. VALPROIC ACID [Suspect]
  5. LORAZEPAM [Concomitant]

REACTIONS (3)
  - HEPATIC FAILURE [None]
  - BRAIN HERNIATION [None]
  - BRAIN OEDEMA [None]
